FAERS Safety Report 10776912 (Version 1)
Quarter: 2015Q1

REPORT INFORMATION
  Report Type: Spontaneous
  Country: US (occurrence: None)
  Receive Date: 20150206
  Receipt Date: 20150206
  Transmission Date: 20150721
  Serious: No
  Sender: FDA-Public Use
  Company Number: None

PATIENT
  Age: 65 Year
  Sex: Female
  Weight: 68.04 kg

DRUGS (3)
  1. TRAZODONE HCI 150 MG [Suspect]
     Active Substance: TRAZODONE HYDROCHLORIDE
     Indication: DEPRESSION
     Dosage: 150 MG/1PILL, ONCE DAILY, TAKEN BY MOUTH
     Route: 048
     Dates: start: 20140205, end: 20140205
  2. TRAZODONE HCI 150 MG [Suspect]
     Active Substance: TRAZODONE HYDROCHLORIDE
     Indication: ANXIETY
     Dosage: 150 MG/1PILL, ONCE DAILY, TAKEN BY MOUTH
     Route: 048
     Dates: start: 20140205, end: 20140205
  3. TRAZODONE HCI 150 MG [Suspect]
     Active Substance: TRAZODONE HYDROCHLORIDE
     Indication: CONDITION AGGRAVATED
     Dosage: 150 MG/1PILL, ONCE DAILY, TAKEN BY MOUTH
     Route: 048
     Dates: start: 20140205, end: 20140205

REACTIONS (8)
  - Panic reaction [None]
  - Nausea [None]
  - Gait disturbance [None]
  - Anxiety [None]
  - Vomiting [None]
  - Diarrhoea [None]
  - Activities of daily living impaired [None]
  - Dizziness [None]

NARRATIVE: CASE EVENT DATE: 20150204
